FAERS Safety Report 6273977-X (Version None)
Quarter: 2009Q3

REPORT INFORMATION
  Report Type: 
  Country: None (occurrence: None)
  Receive Date: 20090720
  Receipt Date: 20090709
  Transmission Date: 20100115
  Serious: Yes (Life-Threatening, Hospitalization, Other)
  Sender: FDA-Public Use
  Company Number: GB-ROCHE-636574

PATIENT
  Age: 32 Year
  Sex: Female

DRUGS (4)
  1. MYCOPHENOLATE MOFETIL [Suspect]
     Route: 065
  2. GANCICLOVIR [Suspect]
     Indication: DRUG USE FOR UNKNOWN INDICATION
     Route: 042
  3. PREDNISOLONE [Suspect]
     Route: 065
  4. TACROLIMUS [Suspect]
     Route: 065

REACTIONS (5)
  - CHOLECYSTITIS INFECTIVE [None]
  - CYTOMEGALOVIRUS VIRAEMIA [None]
  - GALLBLADDER PERFORATION [None]
  - HAEMOBILIA [None]
  - ULCER HAEMORRHAGE [None]
